FAERS Safety Report 9000303 (Version 1)
Quarter: 2013Q1

REPORT INFORMATION
  Report Type: Spontaneous
  Country: US (occurrence: None)
  Receive Date: 20130102
  Receipt Date: 20130102
  Transmission Date: 20140127
  Serious: Yes (Hospitalization)
  Sender: FDA-Public Use
  Company Number: None

PATIENT
  Age: 69 Year
  Sex: Male
  Weight: 64.4 kg

DRUGS (1)
  1. HYDROCHLOROTHIAZIDE [Suspect]
     Indication: HYPERTENSION
     Route: 048
     Dates: start: 20090922, end: 20121212

REACTIONS (7)
  - Rectal haemorrhage [None]
  - Vomiting [None]
  - Asthenia [None]
  - Syncope [None]
  - Orthostatic hypotension [None]
  - Hypokalaemia [None]
  - Hypomagnesaemia [None]
